FAERS Safety Report 5475735-2 (Version None)
Quarter: 2007Q4

REPORT INFORMATION
  Report Type: 
  Country: None (occurrence: None)
  Receive Date: 20071003
  Receipt Date: 20071001
  Transmission Date: 20080405
  Serious: Yes (Other)
  Sender: FDA-Public Use
  Company Number: US-ALLERGAN-0709704US

PATIENT
  Sex: Male
  Weight: 83.447 kg

DRUGS (5)
  1. BOTOX COSMETIC [Suspect]
     Indication: SKIN WRINKLING
     Dosage: 24 UNITS, SINGLE
     Route: 030
     Dates: start: 20070720, end: 20070720
  2. MECLIZINE [Concomitant]
     Indication: MUSCLE RELAXANT THERAPY
  3. CLONAZEPAM [Concomitant]
     Indication: MUSCLE RELAXANT THERAPY
  4. ATIVAN [Concomitant]
     Indication: MUSCLE RELAXANT THERAPY
     Dosage: 0.5 MG, TID
     Route: 048
  5. ATIVAN [Concomitant]
     Indication: ANXIETY

REACTIONS (21)
  - ANXIETY [None]
  - DRY EYE [None]
  - DRY MOUTH [None]
  - EAR DISCOMFORT [None]
  - EAR PAIN [None]
  - EUSTACHIAN TUBE DISORDER [None]
  - EYELID PTOSIS [None]
  - FACIAL PALSY [None]
  - HEADACHE [None]
  - HEARING IMPAIRED [None]
  - HYPERACUSIS [None]
  - HYPERHIDROSIS [None]
  - INJECTION SITE ANAESTHESIA [None]
  - INJECTION SITE REACTION [None]
  - INSOMNIA [None]
  - NERVOUSNESS [None]
  - PARAESTHESIA [None]
  - SPUTUM DECREASED [None]
  - SWOLLEN TONGUE [None]
  - TINNITUS [None]
  - WEIGHT DECREASED [None]
